FAERS Safety Report 13342179 (Version 2)
Quarter: 2017Q2

REPORT INFORMATION
  Report Type: Spontaneous
  Country: US (occurrence: US)
  Receive Date: 20170316
  Receipt Date: 20170405
  Transmission Date: 20170830
  Serious: No
  Sender: FDA-Public Use
  Company Number: US-009507513-1702USA007835

PATIENT
  Age: 28 Year
  Sex: Female
  Weight: 56.24 kg

DRUGS (1)
  1. NEXPLANON [Suspect]
     Active Substance: ETONOGESTREL
     Indication: CONTRACEPTION
     Dosage: 1 DF, UNK
     Route: 059
     Dates: start: 20160516

REACTIONS (5)
  - Uterine pain [Unknown]
  - Metrorrhagia [Unknown]
  - Menorrhagia [Recovered/Resolved]
  - Menorrhagia [Unknown]
  - Menometrorrhagia [Unknown]

NARRATIVE: CASE EVENT DATE: 20160606
